FAERS Safety Report 5457096-8 (Version None)
Quarter: 2007Q3

REPORT INFORMATION
  Report Type: 
  Country: None (occurrence: None)
  Receive Date: 20070918
  Receipt Date: 20070102
  Transmission Date: 20080115
  Serious: Yes (Other)
  Sender: FDA-Public Use
  Company Number: US-ASTRAZENECA-2007UW00115

PATIENT
  Sex: Female

DRUGS (2)
  1. SEROQUEL [Suspect]
     Indication: SCHIZOPHRENIA
     Route: 048
  2. CIMETIDINE [Concomitant]

REACTIONS (9)
  - AGITATION [None]
  - ANXIETY [None]
  - HEART RATE INCREASED [None]
  - INSOMNIA [None]
  - NAUSEA [None]
  - OEDEMA PERIPHERAL [None]
  - TACHYCARDIA [None]
  - TREMOR [None]
  - WEIGHT INCREASED [None]
